FAERS Safety Report 17762354 (Version 1)
Quarter: 2020Q2

REPORT INFORMATION
  Report Type: Report from Study
  Country: US (occurrence: US)
  Receive Date: 20200508
  Receipt Date: 20200508
  Transmission Date: 20200714
  Serious: No
  Sender: FDA-Public Use
  Company Number: NVSC2020US125317

PATIENT
  Sex: Female

DRUGS (1)
  1. COSENTYX [Suspect]
     Active Substance: SECUKINUMAB
     Indication: PSORIASIS
     Dosage: 300 MG, ONCE INA WEEK FOR 5 WEEKS AND THEN Q4WEEKS
     Route: 058
     Dates: start: 202001

REACTIONS (2)
  - Pruritus [Unknown]
  - Alopecia [Unknown]
